FAERS Safety Report 5293619-X (Version None)
Quarter: 2007Q1

REPORT INFORMATION
  Report Type: 
  Country: None (occurrence: None)
  Receive Date: 20070116
  Receipt Date: 20051216
  Transmission Date: 20070707
  Serious: Yes (Other)
  Sender: FDA-Public Use
  Company Number: HQWYE657224JUN04

PATIENT
  Age: 56 Year
  Sex: Female
  Weight: 49.94 kg

DRUGS (1)
  1. PREMPRO [Suspect]
     Indication: HORMONE REPLACEMENT THERAPY
     Dosage: UNSPECIFIED DOSE REGIMEN, ORAL
     Route: 048
     Dates: start: 19950720, end: 19990525

REACTIONS (1)
  - BREAST CANCER IN SITU [None]
